FAERS Safety Report 19055661 (Version 1)
Quarter: 2021Q1

REPORT INFORMATION
  Report Type: Spontaneous
  Country: US (occurrence: US)
  Receive Date: 20210324
  Receipt Date: 20210324
  Transmission Date: 20210420
  Serious: No
  Sender: FDA-Public Use
  Company Number: None

PATIENT
  Sex: Female

DRUGS (9)
  1. CALICUM [Concomitant]
  2. VITAMIN D [Concomitant]
     Active Substance: VITAMIN D NOS
  3. DIMETHYL FUM [Concomitant]
     Active Substance: DIMETHYL FUMARATE
  4. METOPROL TAR [Concomitant]
  5. LOSARATN POT [Concomitant]
  6. AORVASTATIN [Concomitant]
  7. DIMETHYL FUM [Suspect]
     Active Substance: DIMETHYL FUMARATE
     Indication: MULTIPLE SCLEROSIS
     Route: 048
     Dates: start: 20210218
  8. FISH OIL [Concomitant]
     Active Substance: FISH OIL
  9. MULTIPLE VITAMIN [Concomitant]
     Active Substance: VITAMINS

REACTIONS (4)
  - Thrombosis [None]
  - Ligament rupture [None]
  - Fall [None]
  - Ankle fracture [None]
